FAERS Safety Report 6698603-7 (Version None)
Quarter: 2010Q2

REPORT INFORMATION
  Report Type: 
  Country: None (occurrence: None)
  Receive Date: 20100427
  Receipt Date: 20100419
  Transmission Date: 20101027
  Serious: Yes (Hospitalization, Other)
  Sender: FDA-Public Use
  Company Number: IL-PFIZER INC-2010033314

PATIENT
  Age: 41 Year
  Sex: Male

DRUGS (4)
  1. LIPITOR [Suspect]
     Indication: DYSLIPIDAEMIA
     Dosage: 80 MG, 1X/DAY
     Route: 048
     Dates: start: 20100101
  2. NORMITEN [Concomitant]
     Dosage: UNK
  3. ASPIRIN [Concomitant]
     Dosage: UNK
  4. PLAVIX [Concomitant]
     Dosage: 75 MG, UNK

REACTIONS (2)
  - ASTHENIA [None]
  - PARAESTHESIA [None]
